FAERS Safety Report 9785755 (Version 2)
Quarter: 2013Q4

REPORT INFORMATION
  Report Type: Report from Study
  Country: US (occurrence: US)
  Receive Date: 20131227
  Receipt Date: 20131227
  Transmission Date: 20140711
  Serious: Yes (Death, Other)
  Sender: FDA-Public Use
  Company Number: US-BAYER-2013-140568

PATIENT
  Age: 56 Year
  Sex: Male

DRUGS (11)
  1. NEXAVAR [Suspect]
     Indication: HEPATIC CANCER
     Dosage: 200 MG, BID
     Route: 048
     Dates: start: 201207, end: 20120809
  2. NEXAVAR [Suspect]
     Indication: HEPATIC CANCER
     Dosage: 3 TABLETS A DAY IN A DIVIDED DOSES
     Route: 048
     Dates: start: 20120810, end: 201302
  3. NEXAVAR [Suspect]
     Indication: HEPATIC CANCER
     Dosage: 400 MG, BID
     Dates: start: 201302
  4. NADOLOL [Concomitant]
     Dosage: 40 MG, QD
     Route: 048
  5. AMLODIPIN [Concomitant]
     Dosage: 5 MG, QD
     Route: 048
  6. CYCLOBENZAPRINE HYDROCHLORIDE [Concomitant]
     Dosage: 10 MG, TID
     Route: 048
  7. FAMOTIDINE [Concomitant]
     Dosage: 20 MG, QHS
     Route: 048
  8. LACTULOSE [Concomitant]
     Dosage: 30 ML, BID
     Route: 048
  9. LISINOPRIL [Concomitant]
     Dosage: 10 MG, QD
     Route: 048
  10. PANTOPRAZOLE [Concomitant]
     Dosage: 40 MG, QD
     Route: 048
  11. SPIRONOLACTONE [Concomitant]
     Dosage: 25 MG, QD
     Route: 048

REACTIONS (4)
  - Death [Fatal]
  - Anaemia [None]
  - Hepatic cancer [None]
  - Gastrointestinal haemorrhage [None]
